FAERS Safety Report 10211196 (Version 1)
Quarter: 2014Q2

REPORT INFORMATION
  Report Type: Spontaneous
  Country: US (occurrence: None)
  Receive Date: 20140530
  Receipt Date: 20140530
  Transmission Date: 20141212
  Serious: Yes (Life-Threatening, Other)
  Sender: FDA-Public Use
  Company Number: None

PATIENT
  Age: 43 Year
  Sex: Male
  Weight: 85.28 kg

DRUGS (1)
  1. AFRIN [Suspect]
     Indication: NASAL CONGESTION
     Dosage: 2-3 SPRAYS/NOSTRIL AS NEEDED INHALATION
     Route: 055

REACTIONS (2)
  - Dizziness [None]
  - Loss of consciousness [None]
